FAERS Safety Report 13755661 (Version 1)
Quarter: 2017Q3

REPORT INFORMATION
  Report Type: Spontaneous
  Country: US (occurrence: US)
  Receive Date: 20170714
  Receipt Date: 20170714
  Transmission Date: 20171127
  Serious: No
  Sender: FDA-Public Use
  Company Number: None

PATIENT
  Age: 75 Year
  Sex: Male

DRUGS (1)
  1. ERIVEDGE [Suspect]
     Active Substance: VISMODEGIB
     Indication: BASAL CELL CARCINOMA
     Dosage: ?          OTHER DOSE:MG;?
     Route: 048
     Dates: start: 20170510

REACTIONS (4)
  - Therapy cessation [None]
  - Ageusia [None]
  - Decreased appetite [None]
  - Dyspnoea [None]
